FAERS Safety Report 17060023 (Version 3)
Quarter: 2025Q4

REPORT INFORMATION
  Report Type: Spontaneous
  Country: US (occurrence: US)
  Receive Date: 20191121
  Receipt Date: 20251118
  Transmission Date: 20260118
  Serious: Yes (Hospitalization, Other)
  Sender: NOVO NORDISK
  Company Number: US-NOVOPROD-684429

PATIENT
  Age: 58 Year
  Sex: Female

DRUGS (6)
  1. LEVEMIR [Suspect]
     Active Substance: INSULIN DETEMIR
     Indication: Type 1 diabetes mellitus
     Dosage: UNK
     Route: 058
  2. NOVOLOG [Suspect]
     Active Substance: INSULIN ASPART
     Indication: Type 1 diabetes mellitus
     Dosage: UNK
     Route: 058
     Dates: start: 2013
  3. NOVOLOG [Suspect]
     Active Substance: INSULIN ASPART
     Dosage: SLIDING SCALE
     Route: 058
  4. NOVOLOG [Suspect]
     Active Substance: INSULIN ASPART
     Dosage: SLIDING SCALE
     Route: 058
  5. NOVOLOG [Suspect]
     Active Substance: INSULIN ASPART
     Dosage: SLIDING SCALE
     Route: 058
  6. LUMIFORTE [Concomitant]
     Indication: Product used for unknown indication
     Dosage: UNK

REACTIONS (13)
  - Myocardial infarction [Unknown]
  - Eye haemorrhage [Unknown]
  - Blindness unilateral [Unknown]
  - Blood glucose decreased [Unknown]
  - Malaise [Recovering/Resolving]
  - Abdominal discomfort [Recovering/Resolving]
  - Unevaluable event [Unknown]
  - Urinary tract infection [Recovering/Resolving]
  - Hypersensitivity [Unknown]
  - Dyspnoea [Unknown]
  - Blood glucose increased [Unknown]
  - Gallbladder disorder [Unknown]
  - Cough [Unknown]

NARRATIVE: CASE EVENT DATE: 20130101
